FAERS Safety Report 15459022 (Version 2)
Quarter: 2018Q4

REPORT INFORMATION
  Report Type: Report from Study
  Country: CO (occurrence: CO)
  Receive Date: 20181003
  Receipt Date: 20181012
  Transmission Date: 20190204
  Serious: Yes (Hospitalization)
  Sender: FDA-Public Use
  Company Number: PHHY2018CO107575

PATIENT
  Sex: Female
  Weight: 61 kg

DRUGS (1)
  1. GILENYA [Suspect]
     Active Substance: FINGOLIMOD HYDROCHLORIDE
     Indication: MULTIPLE SCLEROSIS
     Dosage: 0.5 MG, QD
     Route: 048
     Dates: start: 20180306

REACTIONS (12)
  - Liver disorder [Recovering/Resolving]
  - Rebound effect [Recovered/Resolved]
  - Diarrhoea [Recovering/Resolving]
  - Blood bilirubin abnormal [Recovering/Resolving]
  - Blood magnesium decreased [Recovering/Resolving]
  - Yellow skin [Recovering/Resolving]
  - Transaminases increased [Recovering/Resolving]
  - Dizziness [Recovering/Resolving]
  - Blood iron decreased [Recovering/Resolving]
  - Vomiting [Recovered/Resolved]
  - Nausea [Recovering/Resolving]
  - Gastritis [Recovered/Resolved]
